FAERS Safety Report 7121151-7 (Version None)
Quarter: 2010Q4

REPORT INFORMATION
  Report Type: 
  Country: None (occurrence: None)
  Receive Date: 20101124
  Receipt Date: 20101110
  Transmission Date: 20110411
  Serious: Yes (Other)
  Sender: FDA-Public Use
  Company Number: PHHY2010CL76540

PATIENT
  Age: 76 Year
  Sex: Female

DRUGS (1)
  1. TAREG D [Suspect]
     Indication: HYPERTENSION
     Dosage: 80/12.5 MG, ONE TABLET PER DAY

REACTIONS (1)
  - BONE NEOPLASM MALIGNANT [None]
